FAERS Safety Report 8871996 (Version 2)
Quarter: 2013Q1

REPORT INFORMATION
  Report Type: Spontaneous
  Country: US (occurrence: US)
  Receive Date: 20121029
  Receipt Date: 20130201
  Transmission Date: 20140127
  Serious: Yes (Other)
  Sender: FDA-Public Use
  Company Number: US-JNJFOC-20121014512

PATIENT
  Age: 43 Year
  Sex: Female

DRUGS (3)
  1. ROGAINE FOR WOMEN REGULAR STRENGTH [Suspect]
     Route: 061
  2. ROGAINE FOR WOMEN REGULAR STRENGTH [Suspect]
     Indication: ALOPECIA
     Route: 061
     Dates: start: 201106, end: 20121021
  3. UNKNOWN MEDICATION [Concomitant]
     Route: 065

REACTIONS (2)
  - Convulsion [Unknown]
  - Loss of consciousness [Unknown]
